FAERS Safety Report 8046962-5 (Version None)
Quarter: 2012Q1

REPORT INFORMATION
  Report Type: 
  Country: None (occurrence: None)
  Receive Date: 20120116
  Receipt Date: 20120113
  Transmission Date: 20120608
  Serious: Yes (Other)
  Sender: FDA-Public Use
  Company Number: ES-BAYER-2012-003556

PATIENT
  Age: 40 Year
  Sex: Female
  Weight: 64 kg

DRUGS (1)
  1. YASMIN DIARIO [Suspect]
     Indication: ACNE
     Dosage: UNK
     Route: 048
     Dates: start: 20111023, end: 20111123

REACTIONS (5)
  - BREAST OEDEMA [None]
  - BREAST PAIN [None]
  - OEDEMA [None]
  - BREAST MASS [None]
  - DIARRHOEA [None]
